FAERS Safety Report 19443850 (Version 2)
Quarter: 2021Q2

REPORT INFORMATION
  Report Type: Report from Study
  Country: TR (occurrence: TR)
  Receive Date: 20210621
  Receipt Date: 20210628
  Transmission Date: 20210717
  Serious: Yes (Hospitalization)
  Sender: FDA-Public Use
  Company Number: TR-ROCHE-2849251

PATIENT
  Age: 81 Year
  Sex: Male
  Weight: 61 kg

DRUGS (13)
  1. ATEZOLIZUMAB. [Suspect]
     Active Substance: ATEZOLIZUMAB
     Indication: NON-SMALL CELL LUNG CANCER
     Dosage: ON 20/MAY/2021, THE PATIENT RECEIVED MOST RECENT DOSE 1200 MG PRIOR TO SAE.
     Route: 042
     Dates: start: 20210312
  2. LASIX [Concomitant]
     Active Substance: FUROSEMIDE
     Indication: ARRHYTHMIA
     Route: 048
     Dates: start: 20210303
  3. ZYRTEC (TURKEY) [Concomitant]
     Indication: ERYTHEMA
     Route: 048
     Dates: start: 20210507, end: 20210520
  4. ALLERSET [Concomitant]
     Active Substance: CETIRIZINE HYDROCHLORIDE
     Indication: HYPERSENSITIVITY
     Route: 048
     Dates: start: 20210312
  5. M?FURO [Concomitant]
     Indication: ERYTHEMA
     Dosage: M?FURO %0.1
     Route: 062
     Dates: start: 20210507, end: 20210520
  6. FITO [Concomitant]
     Indication: DRY SKIN
     Route: 048
     Dates: start: 20210414
  7. TIRAGOLUMAB. [Suspect]
     Active Substance: TIRAGOLUMAB
     Indication: NON-SMALL CELL LUNG CANCER
     Dosage: ON 20/MAY/2021, THE PATIENT RECEIVED MOST RECENT DOSE 600 MG PRIOR TO SAE.
     Route: 042
     Dates: start: 20210312
  8. THYROMAZOL [Concomitant]
     Indication: HYPERTHYROIDISM
     Route: 048
     Dates: start: 20210402
  9. DILTIZEM [Concomitant]
     Indication: ARRHYTHMIA
     Route: 048
     Dates: start: 20210303
  10. SINECOD [Concomitant]
     Active Substance: BUTAMIRATE CITRATE
     Indication: COUGH
     Dosage: MEDICATION DOSE 1 OTHER
     Route: 048
     Dates: start: 20210414
  11. DERMOVATE [Concomitant]
     Active Substance: CLOBETASOL
     Indication: DRY SKIN
     Route: 062
     Dates: start: 20210414
  12. ZYRTEC (TURKEY) [Concomitant]
     Indication: PRURITUS
  13. M?FURO [Concomitant]
     Indication: PRURITUS

REACTIONS (1)
  - Multiple organ dysfunction syndrome [Not Recovered/Not Resolved]

NARRATIVE: CASE EVENT DATE: 20210601
